FAERS Safety Report 7718609-6 (Version None)
Quarter: 2011Q3

REPORT INFORMATION
  Report Type: 
  Country: None (occurrence: None)
  Receive Date: 20110830
  Receipt Date: 20110825
  Transmission Date: 20111222
  Serious: Yes (Other)
  Sender: FDA-Public Use
  Company Number: US-PFIZER INC-2011142295

PATIENT
  Sex: Male

DRUGS (4)
  1. MAXALT [Concomitant]
     Indication: MIGRAINE
     Dosage: UNK
     Dates: start: 20060101
  2. CELEBREX [Concomitant]
     Indication: ARTHRITIS
     Dosage: UNK
     Dates: start: 20060101, end: 20080101
  3. NORCO [Concomitant]
     Indication: PAIN MANAGEMENT
     Dosage: UNK
     Dates: start: 20060101, end: 20080101
  4. CHANTIX [Suspect]
     Indication: SMOKING CESSATION THERAPY
     Dosage: UNK
     Dates: start: 20070202, end: 20080101

REACTIONS (6)
  - ANXIETY [None]
  - PSYCHOTIC BEHAVIOUR [None]
  - AMNESIA [None]
  - AGGRESSION [None]
  - DEPRESSION [None]
  - MENTAL DISORDER [None]
